FAERS Safety Report 23620473 (Version 2)
Quarter: 2024Q2

REPORT INFORMATION
  Report Type: Other
  Country: PY (occurrence: None)
  Receive Date: 20240312
  Receipt Date: 20240506
  Transmission Date: 20240716
  Serious: Yes (Hospitalization)
  Sender: FDA-Public Use
  Company Number: PY-ROCHE-3521924

PATIENT
  Age: 3 Year
  Sex: Female
  Weight: 14.5 kg

DRUGS (4)
  1. EVRYSDI [Suspect]
     Active Substance: RISDIPLAM
     Indication: Spinal muscular atrophy
     Route: 065
     Dates: start: 20210819
  2. OXACILLIN [Concomitant]
     Active Substance: OXACILLIN SODIUM
     Indication: Respiratory tract infection
     Route: 042
     Dates: start: 20240302
  3. CEFTAZIDIME [Concomitant]
     Active Substance: CEFTAZIDIME
     Indication: Respiratory tract infection
     Route: 042
     Dates: start: 20240302
  4. DEXAMETHASONE [Concomitant]
     Active Substance: DEXAMETHASONE
     Indication: Respiratory tract infection
     Route: 042
     Dates: start: 20240302

REACTIONS (16)
  - Pyrexia [Recovered/Resolved]
  - Dyspnoea [Recovering/Resolving]
  - Respiratory tract infection [Recovered/Resolved]
  - Respiratory disorder [Recovered/Resolved]
  - Wheezing [Recovered/Resolved]
  - Pneumonia [Unknown]
  - Cyanosis [Recovered/Resolved]
  - Chest X-ray abnormal [Unknown]
  - Hypotonia [Unknown]
  - Hypokinesia [Unknown]
  - Feeling hot [Unknown]
  - Gastrointestinal disorder [Unknown]
  - Movement disorder [Unknown]
  - Staphylococcus test positive [Unknown]
  - Stenotrophomonas test positive [Unknown]
  - Oxygen saturation decreased [Unknown]

NARRATIVE: CASE EVENT DATE: 20230601
